FAERS Safety Report 8827056 (Version 1)
Quarter: 2012Q4

REPORT INFORMATION
  Report Type: 
  Country: US (occurrence: US)
  Receive Date: 20121005
  Receipt Date: 20121005
  Transmission Date: 20130627
  Serious: Yes (Hospitalization, Other)
  Sender: FDA-Public Use
  Company Number: US-ROXANE LABORATORIES, INC.-2012-RO-01968RO

PATIENT
  Age: 9 Day
  Sex: Female

DRUGS (7)
  1. FLECAINIDE [Suspect]
     Indication: TACHYCARDIA
     Route: 048
  2. FLECAINIDE [Suspect]
     Route: 048
  3. PROPRANOLOL [Suspect]
     Indication: TACHYCARDIA
     Route: 048
  4. DIGOXIN [Suspect]
     Indication: TACHYCARDIA
  5. AMIODARONE [Suspect]
     Indication: TACHYCARDIA
  6. AMIODARONE [Suspect]
     Route: 042
  7. ADENOSINE [Suspect]
     Indication: TACHYCARDIA

REACTIONS (4)
  - Bundle branch block right [Recovered/Resolved]
  - Tachycardia [Recovered/Resolved]
  - Atrioventricular block complete [Recovered/Resolved]
  - Drug ineffective [Unknown]
